FAERS Safety Report 4845255-4 (Version None)
Quarter: 2005Q4

REPORT INFORMATION
  Report Type: 
  Country: None (occurrence: None)
  Receive Date: 20051129
  Receipt Date: 20051111
  Transmission Date: 20060501
  Serious: Yes (Hospitalization)
  Sender: FDA-Public Use
  Company Number: WAES 0511USA01872

PATIENT
  Age: 63 Year
  Sex: Female
  Weight: 114.3065 kg

DRUGS (8)
  1. DECADRON [Suspect]
     Indication: ILL-DEFINED DISORDER
     Dosage: 16 MG/DAILY/PO
     Route: 048
     Dates: start: 20020214
  2. INJ ELLENCE UNK [Suspect]
     Indication: BREAST CANCER FEMALE
     Dosage: 160 MG/DAILY/IV
     Route: 042
     Dates: start: 20020215, end: 20020215
  3. AMARYL [Concomitant]
  4. NORVASC [Concomitant]
  5. INJ DOCETAXEL [Suspect]
     Indication: BREAST CANCER FEMALE
     Dosage: 160 MG/DAILY/IV
     Route: 042
     Dates: start: 20020215, end: 20020215
  6. DECADRON PHOSPHATE [Suspect]
     Dosage: IV
     Route: 042
  7. TOPROL-XL [Concomitant]
  8. DEXTROSE [Concomitant]

REACTIONS (12)
  - BLOOD CHLORIDE INCREASED [None]
  - BLOOD CREATININE INCREASED [None]
  - BLOOD GLUCOSE INCREASED [None]
  - BLOOD SODIUM INCREASED [None]
  - BLOOD UREA INCREASED [None]
  - CANDIDIASIS [None]
  - DEHYDRATION [None]
  - DEPRESSED LEVEL OF CONSCIOUSNESS [None]
  - GASTROINTESTINAL CANDIDIASIS [None]
  - LYMPHOCYTE COUNT DECREASED [None]
  - MUCOSAL INFLAMMATION [None]
  - WHITE BLOOD CELL COUNT DECREASED [None]
